FAERS Safety Report 9523444 (Version 1)
Quarter: 2013Q1

REPORT INFORMATION
  Report Type: Spontaneous
  Country: US (occurrence: None)
  Receive Date: 20130305
  Receipt Date: 20130305
  Transmission Date: 20140127
  Serious: Yes (Life-Threatening, Hospitalization, Other)
  Sender: FDA-Public Use
  Company Number: 163-21880-12012712

PATIENT
  Age: 74 Year
  Sex: Male
  Weight: 73.2 kg

DRUGS (3)
  1. REVLIMID [Suspect]
     Indication: PLASMA CELL MYELOMA
     Dosage: 10 MG, EVERY OTHER DAY, PO
     Route: 048
     Dates: start: 20080828, end: 20120103
  2. DEXAMETHASONE (DEXAMETHASONE) (UNKNOWN) [Concomitant]
  3. ASA (ACETHYLSALICYLIC ACID) (UNKNOWN) [Concomitant]

REACTIONS (1)
  - Pulmonary embolism [None]
